FAERS Safety Report 7909347-5 (Version None)
Quarter: 2011Q4

REPORT INFORMATION
  Report Type: 
  Country: None (occurrence: None)
  Receive Date: 20111111
  Receipt Date: 20111108
  Transmission Date: 20120403
  Serious: Yes (Other)
  Sender: FDA-Public Use
  Company Number: US-PFIZER INC-2011129764

PATIENT
  Sex: Male

DRUGS (3)
  1. CHANTIX [Suspect]
     Indication: SMOKING CESSATION THERAPY
     Dosage: UNK
     Dates: start: 20080301, end: 20080501
  2. MORPHINE SULFATE [Concomitant]
     Indication: PAIN
     Dosage: UNK
     Dates: start: 20030101
  3. CHANTIX [Suspect]
     Dosage: UNK
     Dates: start: 20080601, end: 20080701

REACTIONS (6)
  - ANXIETY [None]
  - NIGHTMARE [None]
  - AGGRESSION [None]
  - INSOMNIA [None]
  - SUICIDAL IDEATION [None]
  - DEPRESSION [None]
